FAERS Safety Report 5511064-6 (Version None)
Quarter: 2007Q4

REPORT INFORMATION
  Report Type: 
  Country: None (occurrence: None)
  Receive Date: 20071109
  Receipt Date: 20071106
  Transmission Date: 20080405
  Serious: Yes (Other)
  Sender: FDA-Public Use
  Company Number: US-BRISTOL-MYERS SQUIBB COMPANY-13972054

PATIENT
  Age: 5 Decade
  Sex: Female
  Weight: 77 kg

DRUGS (6)
  1. ERBITUX [Suspect]
     Indication: COLON CANCER
     Route: 042
     Dates: start: 20071001
  2. DILANTIN [Concomitant]
  3. KEPPRA [Concomitant]
  4. KYTRIL [Concomitant]
     Route: 042
  5. DECADRON [Concomitant]
     Route: 042
  6. CAMPTOSAR [Concomitant]

REACTIONS (3)
  - ANTICONVULSANT DRUG LEVEL DECREASED [None]
  - GRAND MAL CONVULSION [None]
  - TREATMENT NONCOMPLIANCE [None]
